FAERS Safety Report 4476915-5 (Version None)
Quarter: 2004Q4

REPORT INFORMATION
  Report Type: 
  Country: None (occurrence: None)
  Receive Date: 20041012
  Receipt Date: 20041001
  Transmission Date: 20050328
  Serious: Yes (Other)
  Sender: FDA-Public Use
  Company Number: 163-20785-04100120

PATIENT

DRUGS (1)
  1. THALOMID [Suspect]
     Indication: LYMPHOCYTIC LEUKAEMIA
     Dosage: 200MG 1-14 DAYS INCREASING 200MG Q2WKS UP TO 1000MG, DAILY, ORAL
     Route: 048
     Dates: start: 20030114

REACTIONS (9)
  - ASTHENIA [None]
  - FATIGUE [None]
  - GRANULOCYTE COUNT [None]
  - LETHARGY [None]
  - MALAISE [None]
  - NEUTROPHIL COUNT [None]
  - PERIPHERAL MOTOR NEUROPATHY [None]
  - PERIPHERAL SENSORY NEUROPATHY [None]
  - TUMOUR FLARE [None]
